FAERS Safety Report 5498895-6 (Version None)
Quarter: 2007Q4

REPORT INFORMATION
  Report Type: 
  Country: None (occurrence: None)
  Receive Date: 20071026
  Receipt Date: 20070802
  Transmission Date: 20080405
  Serious: No
  Sender: FDA-Public Use
  Company Number: A0667869A

PATIENT
  Age: 74 Year
  Sex: Male

DRUGS (19)
  1. ADVAIR DISKUS 100/50 [Suspect]
     Indication: ASTHMA
     Route: 055
     Dates: start: 20070701
  2. COREG [Suspect]
     Indication: DRUG USE FOR UNKNOWN INDICATION
     Dosage: 25MG TWICE PER DAY
     Route: 048
     Dates: start: 20070401
  3. COREG CR [Suspect]
     Indication: DRUG USE FOR UNKNOWN INDICATION
     Dosage: 80MG PER DAY
     Route: 048
     Dates: start: 20070501
  4. FLOVENT [Suspect]
     Indication: ASTHMA
     Route: 055
  5. SEREVENT [Suspect]
     Indication: ASTHMA
     Route: 055
  6. DIOVAN [Concomitant]
  7. VERAPAMIL [Concomitant]
  8. OMEPRAZOLE [Concomitant]
  9. MINOXIDIL [Concomitant]
  10. LASIX [Concomitant]
  11. ZOCOR [Concomitant]
  12. KLOR-CON [Concomitant]
  13. SINGULAIR [Concomitant]
  14. FLOVENT [Concomitant]
  15. SEREVENT [Concomitant]
  16. ADVAIR DISKUS 100/50 [Concomitant]
  17. FEOSOL [Concomitant]
  18. XALATAN [Concomitant]
  19. ASPIRIN [Concomitant]

REACTIONS (1)
  - OEDEMA [None]
